FAERS Safety Report 15863902 (Version 1)
Quarter: 2019Q1

REPORT INFORMATION
  Report Type: Spontaneous
  Country: US (occurrence: US)
  Receive Date: 20190102
  Receipt Date: 20190102
  Transmission Date: 20190417
  Serious: Yes (Other)
  Sender: FDA-Public Use
  Company Number: None

PATIENT
  Age: 39 Year
  Sex: Male
  Weight: 98.88 kg

DRUGS (1)
  1. ARMODAFINIL 250MG [Suspect]
     Active Substance: ARMODAFINIL
     Indication: SHIFT WORK DISORDER
     Route: 048
     Dates: start: 20160304, end: 20160808

REACTIONS (4)
  - Dry mouth [None]
  - Feeling jittery [None]
  - Heart rate increased [None]
  - Abdominal discomfort [None]

NARRATIVE: CASE EVENT DATE: 20160304
